FAERS Safety Report 10575746 (Version 4)
Quarter: 2018Q3

REPORT INFORMATION
  Report Type: Spontaneous
  Country: US (occurrence: US)
  Receive Date: 20141111
  Receipt Date: 20180702
  Transmission Date: 20181010
  Serious: No
  Sender: FDA-Public Use
  Company Number: US-PFIZER INC-2014305972

PATIENT
  Age: 61 Year
  Sex: Female
  Weight: 77.11 kg

DRUGS (8)
  1. SOMA [Concomitant]
     Active Substance: CARISOPRODOL
     Indication: PAIN
     Dosage: UNK
  2. IBUPROFEN. [Concomitant]
     Active Substance: IBUPROFEN
     Indication: PAIN
     Dosage: 600 MG OR MORE A DAY
  3. LYRICA [Suspect]
     Active Substance: PREGABALIN
     Indication: DIABETIC NEUROPATHY
     Dosage: UNK
     Dates: end: 201410
  4. METFORMIN [Concomitant]
     Active Substance: METFORMIN HYDROCHLORIDE
     Indication: DIABETES MELLITUS
     Dosage: UNK
  5. LYRICA [Suspect]
     Active Substance: PREGABALIN
     Indication: FACIAL PARALYSIS
     Dosage: 600 MG, 1X/DAY
     Dates: start: 2006
  6. LYRICA [Suspect]
     Active Substance: PREGABALIN
     Indication: FIBROMYALGIA
     Dosage: 200 MG, 2X/DAY
     Route: 048
     Dates: start: 2014, end: 2018
  7. SOMA [Concomitant]
     Active Substance: CARISOPRODOL
     Indication: HYPOTONIA
  8. LYRICA [Suspect]
     Active Substance: PREGABALIN
     Indication: NEURALGIA
     Dosage: 300 MG, 1X/DAY

REACTIONS (9)
  - Condition aggravated [Recovered/Resolved with Sequelae]
  - Neuralgia [Unknown]
  - Nausea [Recovered/Resolved with Sequelae]
  - Fall [Unknown]
  - Arthralgia [Not Recovered/Not Resolved]
  - Dizziness [Recovered/Resolved with Sequelae]
  - Malaise [Unknown]
  - Pain [Recovered/Resolved with Sequelae]
  - Withdrawal syndrome [Recovered/Resolved with Sequelae]

NARRATIVE: CASE EVENT DATE: 201806
